FAERS Safety Report 18311961 (Version 1)
Quarter: 2020Q3

REPORT INFORMATION
  Report Type: Spontaneous
  Country: IT (occurrence: IT)
  Receive Date: 20200925
  Receipt Date: 20200925
  Transmission Date: 20201103
  Serious: Yes (Hospitalization)
  Sender: FDA-Public Use
  Company Number: IT-ACCORD-202507

PATIENT
  Age: 67 Year
  Sex: Female

DRUGS (7)
  1. CO?EFFERALGAN [Concomitant]
     Active Substance: ACETAMINOPHEN\CODEINE PHOSPHATE
  2. ATORVASTATIN [Concomitant]
     Active Substance: ATORVASTATIN
  3. ROACTEMRA [Concomitant]
     Active Substance: TOCILIZUMAB
  4. FOLINA [Concomitant]
  5. METHOTREXATE. [Suspect]
     Active Substance: METHOTREXATE
     Indication: RHEUMATOID ARTHRITIS
     Route: 030
     Dates: start: 20170118, end: 20200827
  6. DIBASE [Concomitant]
     Active Substance: CHOLECALCIFEROL
  7. ATENOLOL/ATENOLOL HYDROCHLORIDE [Concomitant]
     Active Substance: ATENOLOL HYDROCHLORIDE

REACTIONS (2)
  - Hepatitis [Recovered/Resolved]
  - Cholangitis [Recovered/Resolved]

NARRATIVE: CASE EVENT DATE: 20200827
